FAERS Safety Report 12654865 (Version 1)
Quarter: 2016Q3

REPORT INFORMATION
  Report Type: Spontaneous
  Country: IN (occurrence: IN)
  Receive Date: 20160816
  Receipt Date: 20160816
  Transmission Date: 20161109
  Serious: Yes (Other)
  Sender: FDA-Public Use
  Company Number: IN-PFIZER INC-2016386152

PATIENT
  Age: 16 Year
  Sex: Female

DRUGS (4)
  1. CEFUROXIME. [Suspect]
     Active Substance: CEFUROXIME
     Indication: PYREXIA
     Dosage: 5 DAYS
     Route: 048
  2. CEFUROXIME. [Suspect]
     Active Substance: CEFUROXIME
     Indication: CHILLS
  3. NORFLOX /00668101/ [Concomitant]
     Indication: PYREXIA
     Dosage: FIRST 3 DAYS
     Route: 048
  4. NORFLOX /00668101/ [Concomitant]
     Indication: CHILLS

REACTIONS (2)
  - Drug ineffective [Unknown]
  - Typhoid fever [Unknown]
